FAERS Safety Report 23595288 (Version 1)
Quarter: 2024Q1

REPORT INFORMATION
  Report Type: Spontaneous
  Country: GB (occurrence: GB)
  Receive Date: 20240305
  Receipt Date: 20240305
  Transmission Date: 20240410
  Serious: Yes (Other)
  Sender: FDA-Public Use
  Company Number: GB-MHRA-TPP399599C8322064YC1708359256955

PATIENT
  Age: 67 Year
  Sex: Female
  Weight: 51 kg

DRUGS (21)
  1. DIGOXIN [Suspect]
     Active Substance: DIGOXIN
     Indication: Product used for unknown indication
     Dosage: 1 DOSAGE FORM, ONCE A DAY
     Route: 065
  2. CALCIUM CARBONATE\SODIUM ALGINATE\SODIUM BICARBONATE [Concomitant]
     Active Substance: CALCIUM CARBONATE\SODIUM ALGINATE\SODIUM BICARBONATE
     Indication: Product used for unknown indication
     Dosage: TAKE 10-20MLS AFTER MEALS AND AT BEDTIME AS REQ...
     Route: 065
     Dates: start: 20230922
  3. BENZYDAMINE HYDROCHLORIDE [Concomitant]
     Active Substance: BENZYDAMINE HYDROCHLORIDE
     Indication: Product used for unknown indication
     Dosage: USE EVERY 3 HRS
     Route: 065
     Dates: start: 20240130, end: 20240204
  4. CARVEDILOL [Concomitant]
     Active Substance: CARVEDILOL
     Indication: Product used for unknown indication
     Dosage: ONE TO BE TAKEN EACH EVENING
     Route: 065
     Dates: start: 20230417
  5. BECLOMETHASONE DIPROPIONATE [Concomitant]
     Active Substance: BECLOMETHASONE DIPROPIONATE
     Indication: Product used for unknown indication
     Dosage: INHALE 1 DOSE TWICE DAILY
     Dates: start: 20230203
  6. EPLERENONE [Concomitant]
     Active Substance: EPLERENONE
     Indication: Product used for unknown indication
     Dosage: TAKE HALF A TABLET EVERY MORNING
     Route: 065
     Dates: start: 20230203
  7. ESTRADIOL [Concomitant]
     Active Substance: ESTRADIOL
     Indication: Product used for unknown indication
     Dosage: APPLY ONE TWICE WEEKLY
     Route: 065
     Dates: start: 20231025
  8. FUROSEMIDE [Concomitant]
     Active Substance: FUROSEMIDE
     Indication: Product used for unknown indication
     Dosage: ONE TABLET EACH MORNING AND ONE AT MIDDAY
     Route: 065
     Dates: start: 20230203
  9. NITROGLYCERIN [Concomitant]
     Active Substance: NITROGLYCERIN
     Indication: Product used for unknown indication
     Dosage: ONE PUFF AS NEEDED
     Route: 065
     Dates: start: 20230322
  10. LANSOPRAZOLE [Concomitant]
     Active Substance: LANSOPRAZOLE
     Indication: Product used for unknown indication
     Dosage: TAKE ONE ONCE DAILY
     Route: 065
     Dates: start: 20230322
  11. METRONIDAZOLE [Concomitant]
     Active Substance: METRONIDAZOLE
     Indication: Product used for unknown indication
     Dosage: TAKE ONE TABLET TWICE DAILY FOR 7 DAYS
     Route: 065
     Dates: start: 20231124, end: 20231201
  12. ACETAMINOPHEN [Concomitant]
     Active Substance: ACETAMINOPHEN
     Indication: Product used for unknown indication
     Dosage: ONE TO BE TAKEN FOUR TIMES DAILY
     Route: 065
     Dates: start: 20230417
  13. PENICILLIN V [Concomitant]
     Active Substance: PENICILLIN V
     Indication: Product used for unknown indication
     Dosage: TAKE TWO TABLETS FOUR TIMES A DAY FOR 5 DAYS
     Route: 065
     Dates: start: 20240130, end: 20240204
  14. PROCHLORPERAZINE [Concomitant]
     Active Substance: PROCHLORPERAZINE
     Indication: Product used for unknown indication
     Dosage: ONE TABLET THREE TIMES A DAY WHEN REQUIRED FOR
     Route: 065
     Dates: start: 20231213, end: 20231214
  15. PROMETHAZINE HYDROCHLORIDE [Concomitant]
     Active Substance: PROMETHAZINE HYDROCHLORIDE
     Indication: Product used for unknown indication
     Dosage: TAKE ONE TO TWO TABLETS AT NIGHT
     Route: 065
     Dates: start: 20231229, end: 20240108
  16. RAMIPRIL [Concomitant]
     Active Substance: RAMIPRIL
     Indication: Product used for unknown indication
     Dosage: ONE TO BE TAKEN EACH MORNING
     Route: 065
     Dates: start: 20230428
  17. RIVAROXABAN [Concomitant]
     Active Substance: RIVAROXABAN
     Indication: Product used for unknown indication
     Dosage: TAKE ONE EACH EVENING
     Route: 065
     Dates: start: 20230203
  18. SENNA [Concomitant]
     Active Substance: SENNA LEAF\SENNOSIDES\SENNOSIDES A AND B
     Indication: Constipation
     Dosage: TAKE 1 OR 2 AT NIGHT WHEN REQUIRED FOR CONSTIPA...
     Route: 065
     Dates: start: 20231030
  19. SIMVASTATIN [Concomitant]
     Active Substance: SIMVASTATIN
     Indication: Product used for unknown indication
     Dosage: TAKE ONE AT NIGHT
     Route: 065
     Dates: start: 20230412
  20. TESTOSTERONE [Concomitant]
     Active Substance: TESTOSTERONE
     Indication: Product used for unknown indication
     Dosage: APPLY 3 TIMES A WEEK
     Route: 065
     Dates: start: 20230203
  21. VENTOLIN [Concomitant]
     Active Substance: ALBUTEROL SULFATE
     Indication: Product used for unknown indication
     Dosage: INHALE 2 DOSES AS NEEDED IF YOU ARE USING THIS ...
     Route: 065
     Dates: start: 20230203

REACTIONS (2)
  - Rash pruritic [Recovered/Resolved]
  - Visual impairment [Unknown]
